FAERS Safety Report 18169288 (Version 1)
Quarter: 2020Q3

REPORT INFORMATION
  Report Type: Spontaneous
  Country: US (occurrence: US)
  Receive Date: 20200818
  Receipt Date: 20200818
  Transmission Date: 20201103
  Serious: Yes (Hospitalization)
  Sender: FDA-Public Use
  Company Number: US-B.I. PHARMACEUTICALS,INC./RIDGEFIELD-2020-US-041785

PATIENT
  Age: 53 Year
  Sex: Female

DRUGS (1)
  1. JARDIANCE [Suspect]
     Active Substance: EMPAGLIFLOZIN
     Indication: DIABETES MELLITUS
     Dosage: 25 MG BY MOUTH DAILY
     Route: 048
     Dates: start: 2018

REACTIONS (2)
  - Euglycaemic diabetic ketoacidosis [Unknown]
  - Pneumothorax [Unknown]

NARRATIVE: CASE EVENT DATE: 2020
